FAERS Safety Report 10523954 (Version 1)
Quarter: 2014Q4

REPORT INFORMATION
  Report Type: Spontaneous
  Country: US (occurrence: None)
  Receive Date: 20141015
  Receipt Date: 20141015
  Transmission Date: 20150528
  Serious: No
  Sender: FDA-Public Use
  Company Number: None

PATIENT

DRUGS (1)
  1. ALBUMIN HUMAN (ALBUMIN (HUMAN) [Suspect]
     Active Substance: ALBUMIN (HUMAN)

REACTIONS (3)
  - Product quality issue [None]
  - Product label confusion [None]
  - Circumstance or information capable of leading to medication error [None]
